FAERS Safety Report 7028873-7 (Version None)
Quarter: 2010Q4

REPORT INFORMATION
  Report Type: 
  Country: None (occurrence: None)
  Receive Date: 20101005
  Receipt Date: 20100930
  Transmission Date: 20110411
  Serious: Yes (Other)
  Sender: FDA-Public Use
  Company Number: US-BRISTOL-MYERS SQUIBB COMPANY-15315930

PATIENT
  Age: 86 Year
  Sex: Male

DRUGS (1)
  1. PENICILLIN V POTASSIUM [Suspect]
     Indication: PROPHYLAXIS

REACTIONS (1)
  - ACQUIRED HAEMOPHILIA [None]
